FAERS Safety Report 7406773-8 (Version None)
Quarter: 2011Q2

REPORT INFORMATION
  Report Type: 
  Country: None (occurrence: None)
  Receive Date: 20110411
  Receipt Date: 20110329
  Transmission Date: 20111010
  Serious: Yes (Hospitalization)
  Sender: FDA-Public Use
  Company Number: PHHY2011DE15763

PATIENT
  Age: 41 Year
  Sex: Female

DRUGS (10)
  1. INEGY [Concomitant]
  2. LEVOTHYROXINE [Concomitant]
     Dosage: 100 UG, UNK
  3. AMITRIPTYLINE [Suspect]
     Dosage: 125 MG/DAY
     Dates: start: 20050101
  4. LORAZEPAM [Concomitant]
     Dosage: 1.5 MG, QD
  5. AMITRIPTYLINE [Suspect]
     Dosage: 150 MG/DAY
  6. AMITRIPTYLINE [Suspect]
     Dosage: 100 MG/DAY
  7. AMITRIPTYLINE [Suspect]
     Dosage: 275 MG/DAY
  8. AMITRIPTYLINE [Suspect]
     Dosage: 100 MG, UNK
  9. ZIPRASIDONE [Suspect]
     Dosage: 20 MG/DAY
  10. ZIPRASIDONE [Suspect]
     Dosage: 160 MG/DAY

REACTIONS (4)
  - ELECTROCARDIOGRAM T WAVE INVERSION [None]
  - BUNDLE BRANCH BLOCK LEFT [None]
  - ATRIOVENTRICULAR BLOCK FIRST DEGREE [None]
  - ELECTROCARDIOGRAM QT PROLONGED [None]
